FAERS Safety Report 5710105-0 (Version None)
Quarter: 2008Q2

REPORT INFORMATION
  Report Type: 
  Country: None (occurrence: None)
  Receive Date: 20080418
  Receipt Date: 20071023
  Transmission Date: 20081010
  Serious: No
  Sender: FDA-Public Use
  Company Number: US-ASTRAZENECA-2007UW24652

PATIENT
  Age: 79 Year
  Sex: Female
  Weight: 61.2 kg

DRUGS (3)
  1. TOPROL-XL [Suspect]
     Indication: HYPERTENSION
     Route: 048
     Dates: start: 20070601
  2. FLECAINIDE ACETATE [Concomitant]
  3. LOTREL [Concomitant]

REACTIONS (5)
  - AMNESIA [None]
  - ARRHYTHMIA [None]
  - CONFUSIONAL STATE [None]
  - HEART RATE IRREGULAR [None]
  - PERSONALITY CHANGE [None]
